FAERS Safety Report 12186911 (Version 1)
Quarter: 2016Q1

REPORT INFORMATION
  Report Type: Spontaneous
  Country: HU (occurrence: HU)
  Receive Date: 20160317
  Receipt Date: 20160317
  Transmission Date: 20160526
  Serious: Yes (Disabling, Other)
  Sender: FDA-Public Use
  Company Number: PHHY2014HU116454

PATIENT
  Age: 54 Year
  Sex: Female
  Weight: 75 kg

DRUGS (8)
  1. Q-10 CO-ENZYME [Concomitant]
     Indication: PRODUCT USED FOR UNKNOWN INDICATION
     Route: 065
  2. ASCORBIC ACID. [Concomitant]
     Active Substance: ASCORBIC ACID
     Indication: PRODUCT USED FOR UNKNOWN INDICATION
     Dosage: 3 G, UNK
     Route: 065
  3. CALCIUM [Concomitant]
     Active Substance: CALCIUM
     Indication: PRODUCT USED FOR UNKNOWN INDICATION
     Route: 065
  4. MESTINON [Concomitant]
     Active Substance: PYRIDOSTIGMINE BROMIDE
     Indication: URINARY TRACT DISORDER
     Dosage: 1 DF, TID
     Route: 065
  5. ZITAZONIUM [Suspect]
     Active Substance: TAMOXIFEN CITRATE
     Indication: PRODUCT USED FOR UNKNOWN INDICATION
     Dosage: 20 MG, QD
     Route: 048
     Dates: start: 2006, end: 201212
  6. FEMARA [Suspect]
     Active Substance: LETROZOLE
     Indication: BREAST CANCER
     Dosage: 2.5 MG, QD
     Route: 048
     Dates: start: 200505, end: 200608
  7. MAGNESIUM [Concomitant]
     Active Substance: MAGNESIUM
     Indication: PRODUCT USED FOR UNKNOWN INDICATION
     Route: 065
  8. TOCOPHEROL [Concomitant]
     Active Substance: TOCOPHEROL
     Indication: PRODUCT USED FOR UNKNOWN INDICATION
     Route: 065

REACTIONS (13)
  - Arthralgia [Recovering/Resolving]
  - Muscle atrophy [Unknown]
  - Spinal deformity [Unknown]
  - Fatigue [Unknown]
  - Drug intolerance [Unknown]
  - Myalgia [Unknown]
  - Paresis [Unknown]
  - Joint range of motion decreased [Unknown]
  - Myalgia [Recovered/Resolved with Sequelae]
  - Pain [Unknown]
  - Asthenia [Not Recovered/Not Resolved]
  - Polyneuropathy [Not Recovered/Not Resolved]
  - Paraneoplastic syndrome [Unknown]

NARRATIVE: CASE EVENT DATE: 20051130
